FAERS Safety Report 5919268-5 (Version None)
Quarter: 2008Q4

REPORT INFORMATION
  Report Type: 
  Country: None (occurrence: None)
  Receive Date: 20081015
  Receipt Date: 20081003
  Transmission Date: 20090506
  Serious: Yes (Hospitalization, Other)
  Sender: FDA-Public Use
  Company Number: PHEH2008US08824

PATIENT
  Sex: Male

DRUGS (1)
  1. EXELON [Suspect]
     Dosage: UNK
     Dates: start: 20080925

REACTIONS (3)
  - BLOOD PRESSURE INCREASED [None]
  - HEART RATE IRREGULAR [None]
  - VASCULAR INSUFFICIENCY [None]
